FAERS Safety Report 5716508-2 (Version None)
Quarter: 2008Q2

REPORT INFORMATION
  Report Type: 
  Country: None (occurrence: None)
  Receive Date: 20080424
  Receipt Date: 20080410
  Transmission Date: 20081010
  Serious: Yes (Hospitalization, Other)
  Sender: FDA-Public Use
  Company Number: GR-BAUSCH-2008BL001626

PATIENT
  Age: 70 Year
  Sex: Female

DRUGS (6)
  1. CIPROFLOXACIN [Suspect]
     Indication: PNEUMONIA
     Route: 042
  2. AZATHIOPRINE [Concomitant]
  3. OLANZAPINE [Concomitant]
  4. VALSARTAN [Concomitant]
  5. FUROSEMIDE [Concomitant]
  6. CEPHALOSPORINS AND RELATED SUBSTANCES [Concomitant]
     Indication: LEUKOCYTOSIS

REACTIONS (2)
  - ELECTROCARDIOGRAM QT PROLONGED [None]
  - EXTRASYSTOLES [None]
